FAERS Safety Report 5390756-6 (Version None)
Quarter: 2007Q3

REPORT INFORMATION
  Report Type: 
  Country: None (occurrence: None)
  Receive Date: 20070716
  Receipt Date: 20050830
  Transmission Date: 20080115
  Serious: Yes (Hospitalization)
  Sender: FDA-Public Use
  Company Number: MPS1-10426

PATIENT
  Age: 11 Month
  Sex: Female
  Weight: 10.6 kg

DRUGS (5)
  1. ALDURAZYME [Suspect]
     Indication: MUCOPOLYSACCHARIDOSIS I
     Dosage: 20 MG QWK; IV
     Route: 042
     Dates: start: 20050713
  2. BENADRYL [Concomitant]
  3. TYLENOL (CAPLET) [Concomitant]
  4. CAPTOPRIL [Concomitant]
  5. TYLENOL W/ CODEINE [Concomitant]

REACTIONS (10)
  - CATHETER SEPSIS [None]
  - EJECTION FRACTION ABNORMAL [None]
  - IRRITABILITY [None]
  - LIVEDO RETICULARIS [None]
  - PALLOR [None]
  - POST PROCEDURAL COMPLICATION [None]
  - PROCEDURAL PAIN [None]
  - RASH [None]
  - SINUS TACHYCARDIA [None]
  - TREMOR [None]
